FAERS Safety Report 11529035 (Version 1)
Quarter: 2015Q3

REPORT INFORMATION
  Report Type: Spontaneous
  Country: PL (occurrence: PL)
  Receive Date: 20150921
  Receipt Date: 20150921
  Transmission Date: 20151125
  Serious: Yes (Other)
  Sender: FDA-Public Use
  Company Number: PL-TEVA-593328ACC

PATIENT
  Sex: Female
  Weight: 60 kg

DRUGS (4)
  1. ZOCOR [Suspect]
     Active Substance: SIMVASTATIN
     Dates: start: 201204, end: 201412
  2. SIMVASTATIN 20MG [Suspect]
     Active Substance: SIMVASTATIN
     Dates: start: 201204, end: 201412
  3. ANGIOLIP [Suspect]
     Active Substance: SIMVASTATIN
     Dates: start: 201204, end: 201412
  4. ANGIOLIP [Suspect]
     Active Substance: SIMVASTATIN
     Dates: start: 201204, end: 201412

REACTIONS (3)
  - Arthralgia [Recovered/Resolved]
  - Blood creatine phosphokinase increased [Recovered/Resolved]
  - Pain in extremity [Recovered/Resolved]
